FAERS Safety Report 14250856 (Version 1)
Quarter: 2017Q4

REPORT INFORMATION
  Report Type: Spontaneous
  Country: US (occurrence: None)
  Receive Date: 20171205
  Receipt Date: 20171205
  Transmission Date: 20180321
  Serious: Yes (Hospitalization)
  Sender: FDA-Public Use
  Company Number: None

PATIENT
  Age: 70 Year
  Sex: Female
  Weight: 122.02 kg

DRUGS (7)
  1. FISH OIL [Concomitant]
     Active Substance: FISH OIL
  2. VENTOLIN HFA [Suspect]
     Active Substance: ALBUTEROL SULFATE
     Indication: RESPIRATORY DISORDER
     Dosage: 1-2 PUFFS EVERY 4 HRS. AS NEEDED. 2 X^S PER DAY BY MOUTH
     Route: 048
     Dates: start: 200911
  3. VENTOLIN HFA [Suspect]
     Active Substance: ALBUTEROL SULFATE
     Indication: ASTHMA
     Dosage: 1-2 PUFFS EVERY 4 HRS. AS NEEDED. 2 X^S PER DAY BY MOUTH
     Route: 048
     Dates: start: 200911
  4. NEBULIZER (MACHINE) [Concomitant]
  5. VIT. D [Concomitant]
  6. ALBUTEROL SULFATE. [Concomitant]
     Active Substance: ALBUTEROL SULFATE
  7. PREDNISONE. [Concomitant]
     Active Substance: PREDNISONE

REACTIONS (3)
  - Extra dose administered [None]
  - Therapeutic response shortened [None]
  - Adverse event [None]
